FAERS Safety Report 7431753-6 (Version None)
Quarter: 2011Q1

REPORT INFORMATION
  Report Type: 
  Country: None (occurrence: None)
  Receive Date: 20110302
  Receipt Date: 20101119
  Transmission Date: 20110831
  Serious: No
  Sender: FDA-Public Use
  Company Number: 022445

PATIENT
  Sex: Male
  Weight: 98.4 kg

DRUGS (2)
  1. IMODIUM [Concomitant]
  2. CIMZIA [Suspect]
     Indication: CROHN'S DISEASE
     Dosage: 200 MG 1X/2 WEEKS SUBCUTANEOUS
     Route: 058
     Dates: start: 20081014

REACTIONS (5)
  - INJECTION SITE PAIN [None]
  - BURNING SENSATION [None]
  - HYPERSENSITIVITY [None]
  - WEIGHT DECREASED [None]
  - DYSPEPSIA [None]
